FAERS Safety Report 8077560-5 (Version None)
Quarter: 2012Q1

REPORT INFORMATION
  Report Type: 
  Country: None (occurrence: None)
  Receive Date: 20120127
  Receipt Date: 20120117
  Transmission Date: 20120608
  Serious: Yes (Other)
  Sender: FDA-Public Use
  Company Number: US-PERRIGO-12US000412

PATIENT
  Sex: Female
  Weight: 72.562 kg

DRUGS (8)
  1. GABAPENTIN [Concomitant]
     Indication: NERVE BLOCK
  2. DAYTIME PE ORIG LIQ 656 [Suspect]
     Indication: NASAL CONGESTION
     Dosage: 2 TABLESPOONS, SINGLE
     Route: 048
     Dates: start: 20120117, end: 20120117
  3. CELEBREX [Concomitant]
     Indication: ARTHRITIS
     Dosage: ONCE DAILY
     Route: 048
  4. PROTONIX [Concomitant]
     Indication: GASTROOESOPHAGEAL REFLUX DISEASE
     Dosage: ONCE DAILY
     Route: 048
  5. GABAPENTIN [Concomitant]
     Indication: ARTHRITIS
     Dosage: UNK
     Route: 065
  6. CALCIUM [Concomitant]
     Indication: SUPPLEMENTATION THERAPY
     Dosage: ONCE DAILY
     Route: 048
  7. GABAPENTIN [Concomitant]
     Indication: HEADACHE
  8. GABAPENTIN [Concomitant]
     Indication: BACK PAIN

REACTIONS (4)
  - THROAT TIGHTNESS [None]
  - DYSPNOEA [None]
  - COUGH [None]
  - OROPHARYNGEAL PAIN [None]
